FAERS Safety Report 21246396 (Version 4)
Quarter: 2023Q1

REPORT INFORMATION
  Report Type: Spontaneous
  Country: US (occurrence: US)
  Receive Date: 20220824
  Receipt Date: 20230315
  Transmission Date: 20230418
  Serious: No
  Sender: FDA-Public Use
  Company Number: US-NOVARTISTESTPH-NVSC2022US186329

PATIENT
  Sex: Female

DRUGS (4)
  1. TAFINLAR [Suspect]
     Active Substance: DABRAFENIB MESYLATE
     Indication: Blood oestrogen abnormal
     Dosage: 150 MG, Q12H (BY MOUTH)
     Route: 048
     Dates: start: 20220427
  2. TAFINLAR [Suspect]
     Active Substance: DABRAFENIB MESYLATE
     Indication: Malignant melanoma
     Dosage: 150 MG, BID (BY MOUTH)
     Route: 048
     Dates: start: 20220427
  3. MEKINIST [Suspect]
     Active Substance: TRAMETINIB DIMETHYL SULFOXIDE
     Indication: Blood oestrogen abnormal
     Dosage: 2 MG, QD (BY MOUTH)
     Route: 048
     Dates: start: 20220427
  4. MEKINIST [Suspect]
     Active Substance: TRAMETINIB DIMETHYL SULFOXIDE
     Indication: Malignant melanoma

REACTIONS (5)
  - Arthralgia [Unknown]
  - Fatigue [Unknown]
  - Cough [Recovering/Resolving]
  - Gingival bleeding [Unknown]
  - Product use in unapproved indication [Unknown]
